FAERS Safety Report 8424247-2 (Version None)
Quarter: 2012Q2

REPORT INFORMATION
  Report Type: 
  Country: None (occurrence: None)
  Receive Date: 20120608
  Receipt Date: 20111013
  Transmission Date: 20120825
  Serious: No
  Sender: FDA-Public Use
  Company Number: US-ASTRAZENECA-2011SE61693

PATIENT
  Age: 87 Year
  Sex: Male
  Weight: 70.8 kg

DRUGS (11)
  1. ADVAIR DISKUS 100/50 [Concomitant]
     Indication: ASTHMA
  2. CARBADOL [Concomitant]
  3. ISOSORBIDE DINITRATE [Concomitant]
  4. CITRALINE HCL [Concomitant]
  5. ALENDRONATE SODIUM [Concomitant]
  6. PULMICORT FLEXHALER [Suspect]
     Indication: ASTHMA
     Route: 055
  7. CYANOCOBALAMIN [Concomitant]
  8. SPIRIVA [Concomitant]
     Indication: ASTHMA
  9. PANTOPRAZOLE [Concomitant]
     Indication: GASTROOESOPHAGEAL REFLUX DISEASE
  10. VITAMIN D [Concomitant]
  11. LISINOPRIL [Concomitant]
     Indication: BLOOD PRESSURE ABNORMAL

REACTIONS (2)
  - TONGUE COATED [None]
  - ORAL DISCOMFORT [None]
